FAERS Safety Report 22304736 (Version 1)
Quarter: 2023Q2

REPORT INFORMATION
  Report Type: Spontaneous
  Country: US (occurrence: None)
  Receive Date: 20230509
  Receipt Date: 20230509
  Transmission Date: 20230721
  Serious: Yes (Other)
  Sender: FDA-Public Use
  Company Number: None

PATIENT
  Age: 74 Year
  Sex: Male
  Weight: 66.6 kg

DRUGS (3)
  1. DONEPEZIL [Suspect]
     Active Substance: DONEPEZIL
     Indication: Dementia Alzheimer^s type
  2. LEVOTHYROXINE [Concomitant]
     Active Substance: LEVOTHYROXINE
  3. TAMSULOSIN [Concomitant]
     Active Substance: TAMSULOSIN

REACTIONS (3)
  - Nausea [None]
  - Palpitations [None]
  - Headache [None]

NARRATIVE: CASE EVENT DATE: 20230509
